FAERS Safety Report 20756718 (Version 1)
Quarter: 2022Q2

REPORT INFORMATION
  Report Type: Report from Study
  Country: GB (occurrence: GB)
  Receive Date: 20220427
  Receipt Date: 20220427
  Transmission Date: 20220721
  Serious: Yes (Other)
  Sender: FDA-Public Use
  Company Number: GB-NOVARTISPH-NVSC2022GB092318

PATIENT

DRUGS (7)
  1. COSENTYX [Suspect]
     Active Substance: SECUKINUMAB
     Indication: Foetal exposure during pregnancy
     Dosage: UNK (MATERNAL DOSE: 300 MG)
     Route: 064
  2. BETNOVATE [Concomitant]
     Active Substance: BETAMETHASONE
     Indication: Product used for unknown indication
     Dosage: UNK
     Route: 064
  3. EUMOVATE [Concomitant]
     Active Substance: CLOBETASONE BUTYRATE
     Indication: Foetal exposure during pregnancy
     Dosage: UNK
     Route: 064
  4. ENSTILAR [Concomitant]
     Active Substance: BETAMETHASONE DIPROPIONATE\CALCIPOTRIENE HYDRATE
     Indication: Foetal exposure during pregnancy
     Dosage: UNK
     Route: 064
  5. COCOIS [Concomitant]
     Indication: Foetal exposure during pregnancy
     Dosage: UNK
     Route: 064
  6. CAPASAL [Concomitant]
     Indication: Foetal exposure during pregnancy
     Dosage: UNK
     Route: 064
  7. SERTRALINE [Concomitant]
     Active Substance: SERTRALINE HYDROCHLORIDE
     Indication: Foetal exposure during pregnancy
     Dosage: UNK
     Route: 064

REACTIONS (3)
  - Foetal growth restriction [Unknown]
  - Foetal distress syndrome [Unknown]
  - Foetal exposure during pregnancy [Unknown]
